FAERS Safety Report 9052743 (Version 2)
Quarter: 2013Q2

REPORT INFORMATION
  Report Type: Spontaneous
  Country: DE (occurrence: FR)
  Receive Date: 20130207
  Receipt Date: 20130611
  Transmission Date: 20140414
  Serious: Yes (Hospitalization, Disabling)
  Sender: FDA-Public Use
  Company Number: FR-FRI-1000042462

PATIENT
  Age: 70 Year
  Sex: Female

DRUGS (5)
  1. MEMANTINE [Suspect]
     Dosage: 20 MG
     Route: 048
     Dates: start: 20120611, end: 20120731
  2. ESCITALOPRAM [Concomitant]
  3. METHOTREXATE [Concomitant]
     Route: 062
  4. EXELON [Concomitant]
     Route: 062
  5. SPECIAFOLDINE [Concomitant]

REACTIONS (2)
  - Phlebitis [Recovered/Resolved with Sequelae]
  - Pulmonary embolism [Recovered/Resolved with Sequelae]
